FAERS Safety Report 11484927 (Version 1)
Quarter: 2015Q3

REPORT INFORMATION
  Report Type: Spontaneous
  Country: US (occurrence: US)
  Receive Date: 20150903
  Receipt Date: 20150903
  Transmission Date: 20151125
  Serious: No
  Sender: FDA-Public Use
  Company Number: US-ELI_LILLY_AND_COMPANY-US201207006463

PATIENT
  Age: 34 Year
  Sex: Female
  Weight: 61.22 kg

DRUGS (1)
  1. CYMBALTA [Suspect]
     Active Substance: DULOXETINE HYDROCHLORIDE
     Indication: DEPRESSION
     Dosage: 30 MG, DAILY
     Dates: start: 201107, end: 201112

REACTIONS (5)
  - Night sweats [Recovered/Resolved]
  - Visual impairment [Recovered/Resolved]
  - Urge incontinence [Recovered/Resolved]
  - Drug withdrawal syndrome [Unknown]
  - Nocturia [Recovered/Resolved]
